FAERS Safety Report 4727950-0 (Version None)
Quarter: 2005Q3

REPORT INFORMATION
  Report Type: 
  Country: None (occurrence: None)
  Receive Date: 20050725
  Receipt Date: 20050323
  Transmission Date: 20060218
  Serious: No
  Sender: FDA-Public Use
  Company Number: USA050393993

PATIENT
  Age: 6 Year
  Sex: Male

DRUGS (1)
  1. STRATTERA [Suspect]
     Indication: ATTENTION DEFICIT/HYPERACTIVITY DISORDER
     Dosage: 40 MG
     Dates: start: 20050201

REACTIONS (6)
  - DECREASED APPETITE [None]
  - DYSPHAGIA [None]
  - EARLY MORNING AWAKENING [None]
  - MOOD ALTERED [None]
  - SOMNOLENCE [None]
  - VOMITING [None]
